FAERS Safety Report 9519717 (Version 1)
Quarter: 2013Q3

REPORT INFORMATION
  Report Type: Spontaneous
  Country: US (occurrence: None)
  Receive Date: 20130911
  Receipt Date: 20130911
  Transmission Date: 20140515
  Serious: Yes (Life-Threatening)
  Sender: FDA-Public Use
  Company Number: None

PATIENT
  Age: 27 Year
  Sex: Male
  Weight: 99 kg

DRUGS (2)
  1. ACETAMINOPHEN WITH CODEINE [Suspect]
     Dates: start: 20130909
  2. ALBUTEROL INHALER [Concomitant]

REACTIONS (1)
  - Unresponsive to stimuli [None]
